FAERS Safety Report 7493897-2 (Version None)
Quarter: 2011Q2

REPORT INFORMATION
  Report Type: 
  Country: None (occurrence: None)
  Receive Date: 20110513
  Receipt Date: 20110504
  Transmission Date: 20111010
  Serious: Yes (Death)
  Sender: FDA-Public Use
  Company Number: TRP_07707_2011

PATIENT
  Age: 53 Year
  Sex: Female

DRUGS (4)
  1. TEICOPLANIN (TEICOPLANIN) [Suspect]
     Dosage: (DF)
  2. IMIPENEM (IMIPENEM) [Suspect]
     Indication: FUNGAEMIA
     Dosage: (DF)
  3. AMPHOTERICIN B [Suspect]
     Indication: FUNGAEMIA
     Dosage: 3 MG/KG, DF), (DF)
  4. CIPROFLOXACIN [Suspect]
     Dosage: (DP), (DF)

REACTIONS (10)
  - FEBRILE NEUTROPENIA [None]
  - CULTURE STOOL POSITIVE [None]
  - TACHYCARDIA [None]
  - ANAEMIA [None]
  - CANDIDIASIS [None]
  - LEUKOCYTOSIS [None]
  - SHOCK [None]
  - MULTI-ORGAN FAILURE [None]
  - ACUTE MYELOID LEUKAEMIA [None]
  - OLIGURIA [None]
